FAERS Safety Report 6581804-6 (Version None)
Quarter: 2010Q1

REPORT INFORMATION
  Report Type: 
  Country: None (occurrence: None)
  Receive Date: 20100215
  Receipt Date: 20100208
  Transmission Date: 20100710
  Serious: Yes (Hospitalization)
  Sender: FDA-Public Use
  Company Number: PHHY2010US03733

PATIENT
  Sex: Female

DRUGS (4)
  1. FEMARA [Suspect]
     Indication: BREAST CANCER
     Dosage: 2.5 MG, QD
     Route: 048
     Dates: start: 20090921
  2. OXYBUTYNIN [Concomitant]
     Dosage: 5 MG DAILY
  3. LISINOPRIL [Concomitant]
     Indication: HYPERTENSION
     Dosage: 10 MG DAILY
  4. CELEXA [Concomitant]
     Dosage: 20 MG DAILY

REACTIONS (10)
  - ACIDOSIS [None]
  - ASTHENIA [None]
  - DIVERTICULUM [None]
  - ESCHERICHIA INFECTION [None]
  - HYPERKALAEMIA [None]
  - HYPOCALCAEMIA [None]
  - RENAL CYST [None]
  - RENAL FAILURE ACUTE [None]
  - RENAL FAILURE CHRONIC [None]
  - URINARY TRACT INFECTION [None]
